FAERS Safety Report 21444095 (Version 1)
Quarter: 2022Q4

REPORT INFORMATION
  Report Type: Spontaneous
  Country: PT (occurrence: PT)
  Receive Date: 20221012
  Receipt Date: 20221012
  Transmission Date: 20230113
  Serious: Yes (Hospitalization, Other)
  Sender: FDA-Public Use
  Company Number: PT-SA-SAC20221007000002

PATIENT
  Age: 56 Year
  Sex: Female

DRUGS (6)
  1. CAPLACIZUMAB [Suspect]
     Active Substance: CAPLACIZUMAB
     Dosage: UNK UNK, QD
     Route: 065
     Dates: start: 20211009
  2. METHYLPREDNISOLONE [Concomitant]
     Active Substance: METHYLPREDNISOLONE
     Dosage: 1 G, QD (1 G / DAY 3 DAYS)
     Route: 065
  3. METHYLPREDNISOLONE [Concomitant]
     Active Substance: METHYLPREDNISOLONE
     Dosage: 500 MG, QD
     Route: 065
  4. PREDNISOLONE [Concomitant]
     Active Substance: PREDNISOLONE
     Dosage: 1 MG/KG, QD
     Route: 065
  5. RITUXIMAB [Concomitant]
     Active Substance: RITUXIMAB
     Dosage: 375 MG/M2, QW
     Route: 065
     Dates: start: 20211004
  6. RITUXIMAB [Concomitant]
     Active Substance: RITUXIMAB
     Dosage: 500 MG, QD
     Route: 065

REACTIONS (8)
  - Intensive care unit acquired weakness [Unknown]
  - Septic shock [Recovered/Resolved]
  - Platelet count increased [Unknown]
  - Hypovolaemic shock [Unknown]
  - Post procedural haematoma [Unknown]
  - Cystitis [Unknown]
  - Motor dysfunction [Recovering/Resolving]
  - Thalamic infarction [Unknown]

NARRATIVE: CASE EVENT DATE: 20210101
